FAERS Safety Report 9517565 (Version 1)
Quarter: 2013Q3

REPORT INFORMATION
  Report Type: Spontaneous
  Country: JP (occurrence: JP)
  Receive Date: 20130911
  Receipt Date: 20130911
  Transmission Date: 20140515
  Serious: Yes (Other)
  Sender: FDA-Public Use
  Company Number: JP-009507513-1309JPN003106

PATIENT
  Age: 7 Decade
  Sex: Female

DRUGS (3)
  1. JANUVIA TABLETS 50MG [Suspect]
     Indication: DIABETES MELLITUS
     Dosage: 50 MG, QD
     Route: 048
  2. MICARDIS [Concomitant]
     Indication: HYPERTENSION
     Dosage: 40 MG, QD
     Route: 048
  3. CRESTOR [Concomitant]
     Indication: HYPERCHOLESTEROLAEMIA
     Dosage: 2.5 MG, QD
     Route: 048

REACTIONS (1)
  - Liposarcoma [Not Recovered/Not Resolved]
